FAERS Safety Report 7419916-7 (Version None)
Quarter: 2011Q2

REPORT INFORMATION
  Report Type: 
  Country: None (occurrence: None)
  Receive Date: 20110413
  Receipt Date: 20110413
  Transmission Date: 20111010
  Serious: Yes (Other)
  Sender: FDA-Public Use
  Company Number: None

PATIENT
  Sex: Male
  Weight: 113.6 kg

DRUGS (2)
  1. ZOLPIDEM [Suspect]
     Indication: INSOMNIA
     Dosage: 12.5 MG AT BEDTIME ORAL NEW BRAND STARTING
     Route: 048
     Dates: start: 20110323
  2. AMBIEN CR [Suspect]

REACTIONS (6)
  - PRODUCT SUBSTITUTION ISSUE [None]
  - NIGHTMARE [None]
  - HEADACHE [None]
  - AMNESIA [None]
  - MOVEMENT DISORDER [None]
  - DISTURBANCE IN ATTENTION [None]
